FAERS Safety Report 7419054-3 (Version None)
Quarter: 2011Q2

REPORT INFORMATION
  Report Type: 
  Country: None (occurrence: None)
  Receive Date: 20110415
  Receipt Date: 20110404
  Transmission Date: 20111010
  Serious: Yes (Other)
  Sender: FDA-Public Use
  Company Number: PHHY2011US28584

PATIENT
  Sex: Female

DRUGS (6)
  1. ATIVAN [Concomitant]
  2. SYNTHROID [Concomitant]
  3. CALCIUM [Concomitant]
  4. OMEPRAZOLE [Concomitant]
  5. RECLAST [Suspect]
     Dosage: UNK
     Route: 042
     Dates: start: 20100701
  6. COZAAR [Concomitant]

REACTIONS (11)
  - HYPOAESTHESIA [None]
  - SCIATICA [None]
  - DIARRHOEA [None]
  - PNEUMONIA MYCOPLASMAL [None]
  - PARAESTHESIA [None]
  - PAIN IN JAW [None]
  - PAIN IN EXTREMITY [None]
  - FIBROMYALGIA [None]
  - INFLUENZA LIKE ILLNESS [None]
  - ARTHRALGIA [None]
  - NAUSEA [None]
